FAERS Safety Report 18765872 (Version 3)
Quarter: 2021Q3

REPORT INFORMATION
  Report Type: Spontaneous
  Country: JP (occurrence: JP)
  Receive Date: 20210121
  Receipt Date: 20210715
  Transmission Date: 20211014
  Serious: Yes (Hospitalization, Other)
  Sender: FDA-Public Use
  Company Number: JP-UNITED THERAPEUTICS-UNT-2015-012343

PATIENT
  Age: 46 Year
  Sex: Female
  Weight: 83 kg

DRUGS (24)
  1. REMODULIN [Suspect]
     Active Substance: TREPROSTINIL
     Dosage: 0.003 ?G/KG, CONTINUING
     Route: 058
     Dates: start: 201509
  2. REMODULIN [Suspect]
     Active Substance: TREPROSTINIL
     Dosage: 0.0323 ?G/KG, CONTINUING
     Route: 058
     Dates: start: 201510
  3. REMODULIN [Suspect]
     Active Substance: TREPROSTINIL
     Dosage: 0.108 ?G/KG, CONTINUING
     Route: 058
  4. WARFARIN [Concomitant]
     Active Substance: WARFARIN
     Indication: PULMONARY ARTERIAL HYPERTENSION
     Dosage: 3.25 MG/DAY
     Route: 048
     Dates: end: 20161216
  5. REMODULIN [Suspect]
     Active Substance: TREPROSTINIL
     Dosage: 0.011 ?G/KG, CONTINUING
     Route: 058
     Dates: start: 201510
  6. REMODULIN [Suspect]
     Active Substance: TREPROSTINIL
     Dosage: 0.0146 ?G/KG, CONTINUING
     Route: 058
     Dates: start: 201510
  7. SPIRONOLACTONE. [Concomitant]
     Active Substance: SPIRONOLACTONE
     Indication: PULMONARY ARTERIAL HYPERTENSION
     Dosage: 50 MG/DAY
     Route: 048
  8. CALONAL [Concomitant]
     Active Substance: ACETAMINOPHEN
     Indication: PAIN PROPHYLAXIS
     Dosage: 600 MG/DAY
     Route: 048
     Dates: start: 20150924, end: 20200811
  9. PRIMPERAN [Concomitant]
     Active Substance: METOCLOPRAMIDE HYDROCHLORIDE
     Indication: PROPHYLAXIS
     Dosage: 15 MG/DAY
     Route: 048
     Dates: start: 20160302, end: 20161206
  10. CRESTOR [Concomitant]
     Active Substance: ROSUVASTATIN CALCIUM
     Indication: DYSLIPIDAEMIA
     Dosage: UNK
     Route: 048
     Dates: end: 20151003
  11. DIART [AZOSEMIDE] [Concomitant]
     Active Substance: AZOSEMIDE
     Indication: PULMONARY ARTERIAL HYPERTENSION
     Dosage: 60 MG/DAY
     Route: 048
  12. METOCLOPRAMIDE. [Concomitant]
     Active Substance: METOCLOPRAMIDE
     Indication: PROPHYLAXIS
     Dosage: 15 MG/DAY
     Route: 048
     Dates: start: 20150925, end: 20160301
  13. REMODULIN [Suspect]
     Active Substance: TREPROSTINIL
     Indication: PULMONARY ARTERIAL HYPERTENSION
     Dosage: UNK, CONTINUING
     Route: 058
     Dates: start: 20150924
  14. REMODULIN [Suspect]
     Active Substance: TREPROSTINIL
     Dosage: 0.0209 ?G/KG, CONTINUING
     Route: 058
     Dates: start: 201510
  15. BERASUS [Concomitant]
     Active Substance: BERAPROST SODIUM
     Indication: PULMONARY ARTERIAL HYPERTENSION
     Dosage: UNK
     Route: 048
     Dates: start: 201506, end: 20151009
  16. REMODULIN [Suspect]
     Active Substance: TREPROSTINIL
     Dosage: 0.010 ?G/KG, CONTINUING
     Route: 058
     Dates: start: 2015
  17. OPSUMIT [Concomitant]
     Active Substance: MACITENTAN
     Indication: PULMONARY ARTERIAL HYPERTENSION
     Dosage: 10 MG/DAY
     Route: 048
     Dates: start: 201506
  18. ADEMPAS [Concomitant]
     Active Substance: RIOCIGUAT
     Indication: PULMONARY ARTERIAL HYPERTENSION
     Dosage: 7.5 MG/DAY
     Route: 048
     Dates: start: 201507
  19. SAMSCA [Concomitant]
     Active Substance: TOLVAPTAN
     Indication: PULMONARY ARTERIAL HYPERTENSION
     Dosage: UNK
     Route: 048
     Dates: end: 20151016
  20. METOCLOPRAMIDE. [Concomitant]
     Active Substance: METOCLOPRAMIDE
     Dosage: UNK
     Route: 048
     Dates: start: 20170104, end: 20171017
  21. FERROUS SODIUM CITRATE [Concomitant]
     Active Substance: SODIUM FERROUS CITRATE
     Indication: ANAEMIA
     Dosage: 100 MG/DAY
     Route: 048
     Dates: start: 20160720
  22. REMODULIN [Suspect]
     Active Substance: TREPROSTINIL
     Dosage: 0.002 ?G/KG, CONTINUING
     Route: 058
     Dates: start: 201509
  23. REMODULIN [Suspect]
     Active Substance: TREPROSTINIL
     Dosage: 0.048 ?G/KG, CONTINUING
     Route: 058
     Dates: start: 2015
  24. REMODULIN [Suspect]
     Active Substance: TREPROSTINIL
     Dosage: 0.128 ?G/KG, CONTINUING
     Route: 058
     Dates: start: 2016

REACTIONS (14)
  - Diarrhoea [Recovered/Resolved]
  - Depressed mood [Recovered/Resolved]
  - Vomiting [Recovered/Resolved]
  - Injection site erythema [Recovered/Resolved]
  - Weight decreased [Recovered/Resolved]
  - Catheter site extravasation [Unknown]
  - Hypothyroidism [Recovered/Resolved]
  - Injection site swelling [Not Recovered/Not Resolved]
  - Injection site pain [Unknown]
  - Oedema peripheral [Recovered/Resolved]
  - Thyroiditis [Recovering/Resolving]
  - Injection site induration [Not Recovered/Not Resolved]
  - Injection site pruritus [Recovered/Resolved]
  - Nausea [Recovered/Resolved]

NARRATIVE: CASE EVENT DATE: 2015
